FAERS Safety Report 10606073 (Version 4)
Quarter: 2014Q4

REPORT INFORMATION
  Report Type: Spontaneous
  Country: JP (occurrence: None)
  Receive Date: 20141121
  Receipt Date: 20141224
  Transmission Date: 20150529
  Serious: Yes (Death, Other)
  Sender: FDA-Public Use
  Company Number: ADR-2014-02168

PATIENT
  Age: 73 Year
  Sex: Male

DRUGS (1)
  1. GABALON [Suspect]
     Active Substance: BACLOFEN
     Indication: BRAIN HYPOXIA
     Dates: start: 20130709, end: 20141113

REACTIONS (2)
  - Death [None]
  - Malaise [None]

NARRATIVE: CASE EVENT DATE: 20141113
